FAERS Safety Report 4354372-7 (Version None)
Quarter: 2004Q2

REPORT INFORMATION
  Report Type: 
  Country: None (occurrence: None)
  Receive Date: 20040506
  Receipt Date: 20040428
  Transmission Date: 20050107
  Serious: Yes (Life-Threatening, Hospitalization, Disabling)
  Sender: FDA-Public Use
  Company Number: US-MERCK-0404USA02423

PATIENT
  Age: 76 Year
  Sex: Female

DRUGS (4)
  1. ASPIRIN [Concomitant]
     Route: 065
  2. LIPITOR [Concomitant]
     Route: 065
  3. COZAAR [Suspect]
     Route: 048
  4. COUMADIN [Concomitant]
     Route: 065

REACTIONS (3)
  - BLOOD BILIRUBIN ABNORMAL [None]
  - HEPATIC ENZYME INCREASED [None]
  - JAUNDICE [None]
